FAERS Safety Report 21289659 (Version 1)
Quarter: 2022Q3

REPORT INFORMATION
  Report Type: Spontaneous
  Country: US (occurrence: None)
  Receive Date: 20220902
  Receipt Date: 20220902
  Transmission Date: 20221027
  Serious: Yes (Other)
  Sender: FDA-Public Use
  Company Number: 2022A302105

PATIENT

DRUGS (1)
  1. BRILINTA [Suspect]
     Active Substance: TICAGRELOR
     Route: 048

REACTIONS (4)
  - Blood potassium decreased [Recovered/Resolved]
  - Dyspnoea [Recovering/Resolving]
  - Small intestinal haemorrhage [Unknown]
  - Syncope [Unknown]
